FAERS Safety Report 5724533-0 (Version None)
Quarter: 2008Q2

REPORT INFORMATION
  Report Type: 
  Country: None (occurrence: None)
  Receive Date: 20080428
  Receipt Date: 20080415
  Transmission Date: 20081010
  Serious: Yes (Other)
  Sender: FDA-Public Use
  Company Number: CIP08000631

PATIENT

DRUGS (1)
  1. ASACOL [Suspect]
     Dosage: ORAL
     Route: 048

REACTIONS (1)
  - RENAL CELL CARCINOMA [None]
